FAERS Safety Report 8960235 (Version 2)
Quarter: 2013Q1

REPORT INFORMATION
  Report Type: Spontaneous
  Country: NL (occurrence: NL)
  Receive Date: 20121212
  Receipt Date: 20130131
  Transmission Date: 20140127
  Serious: Yes (Hospitalization)
  Sender: FDA-Public Use
  Company Number: NL-PFIZER INC-2012307621

PATIENT
  Age: 57 Year
  Sex: Female
  Weight: 56.1 kg

DRUGS (5)
  1. SUTENT [Suspect]
     Indication: RENAL CANCER METASTATIC
     Dosage: 50 MG, UNK
     Route: 048
     Dates: start: 20120704, end: 20121116
  2. LYRICA [Concomitant]
     Dosage: 75 MG, 2X/DAY
     Route: 048
  3. GRANISETRON [Concomitant]
     Indication: NAUSEA
     Dosage: 1 MG, 2X/DAY
     Route: 048
  4. OXYCONTIN [Concomitant]
     Indication: PAIN
     Dosage: 10 MG, 2X/DAY
     Route: 048
  5. PANTOPRAZOL [Concomitant]
     Dosage: 40 MG, 1X/DAY
     Route: 048

REACTIONS (1)
  - Neutropenic colitis [Recovering/Resolving]
